FAERS Safety Report 25682325 (Version 1)
Quarter: 2025Q3

REPORT INFORMATION
  Report Type: Spontaneous
  Country: US (occurrence: None)
  Receive Date: 20250814
  Receipt Date: 20250814
  Transmission Date: 20251021
  Serious: Yes (Death, Life-Threatening, Hospitalization, Disabling)
  Sender: FDA-CTU
  Company Number: None

PATIENT
  Age: 71 Year
  Sex: Female
  Weight: 99.79 kg

DRUGS (2)
  1. ARANESP [Suspect]
     Active Substance: DARBEPOETIN ALFA
     Dosage: OTHER STRENGTH : 150/0.3 UG/ML;?FREQUENCY : WEEKLY;?
     Route: 058
  2. MIRCERA [Suspect]
     Active Substance: METHOXY POLYETHYLENE GLYCOL-EPOETIN BETA

REACTIONS (10)
  - Overdose [None]
  - Wrong technique in device usage process [None]
  - Product preparation error [None]
  - Product prescribing issue [None]
  - Product communication issue [None]
  - Renal failure [None]
  - Haemodialysis [None]
  - Acute respiratory failure [None]
  - Drug monitoring procedure not performed [None]
  - Peritoneal dialysis [None]

NARRATIVE: CASE EVENT DATE: 20180101
